FAERS Safety Report 8046159-9 (Version None)
Quarter: 2012Q1

REPORT INFORMATION
  Report Type: 
  Country: None (occurrence: None)
  Receive Date: 20120112
  Receipt Date: 20120112
  Transmission Date: 20120608
  Serious: No
  Sender: FDA-Public Use
  Company Number: None

PATIENT
  Sex: Female
  Weight: 89.1 kg

DRUGS (2)
  1. FENTANYL [Suspect]
     Indication: PAIN
     Dosage: 100 MCG/HR 2 EVERY 48 HOURS TRANSDERMAL
     Route: 062
     Dates: start: 20120109
  2. FENTANYL [Suspect]
     Indication: PAIN
     Dosage: 100 MCG 2 EVERY 48 HOURS TRANSDERMAL
     Route: 062

REACTIONS (3)
  - PRODUCT ADHESION ISSUE [None]
  - APPLICATION SITE RASH [None]
  - PRODUCT SUBSTITUTION ISSUE [None]
